FAERS Safety Report 5908655-7 (Version None)
Quarter: 2008Q3

REPORT INFORMATION
  Report Type: 
  Country: None (occurrence: None)
  Receive Date: 20080929
  Receipt Date: 20080922
  Transmission Date: 20090109
  Serious: Yes (Hospitalization)
  Sender: FDA-Public Use
  Company Number: 2008SP002280

PATIENT
  Sex: Female
  Weight: 58.9 kg

DRUGS (6)
  1. LUNESTA [Suspect]
     Indication: INSOMNIA
     Dosage: 2 MG;HS;ORAL; 1 MG;1X;ORAL
     Route: 048
     Dates: start: 20080701, end: 20080701
  2. LUNESTA [Suspect]
     Indication: INSOMNIA
     Dosage: 2 MG;HS;ORAL; 1 MG;1X;ORAL
     Route: 048
     Dates: start: 20080701
  3. DIOVAN [Concomitant]
  4. TENORMIN [Concomitant]
  5. CHOLESTEROL- AND TRIGLYCERIDE REDUCERS [Concomitant]
  6. RESTORIL [Concomitant]

REACTIONS (5)
  - AMNESIA [None]
  - CONDITION AGGRAVATED [None]
  - HYPERTENSION [None]
  - HYPOCALCAEMIA [None]
  - HYPONATRAEMIA [None]
